FAERS Safety Report 23388157 (Version 1)
Quarter: 2024Q1

REPORT INFORMATION
  Report Type: Spontaneous
  Country: US (occurrence: None)
  Receive Date: 20240110
  Receipt Date: 20240110
  Transmission Date: 20240410
  Serious: Yes (Hospitalization)
  Sender: FDA-Public Use
  Company Number: None

PATIENT
  Age: 19 Year
  Sex: Male
  Weight: 89 kg

DRUGS (3)
  1. ARIPIPRAZOLE [Suspect]
     Active Substance: ARIPIPRAZOLE
     Dates: start: 20240109, end: 20240109
  2. ARISTADA INITIO [Suspect]
     Active Substance: ARIPIPRAZOLE LAUROXIL
     Dates: start: 20240109
  3. ARISTADA [Suspect]
     Active Substance: ARIPIPRAZOLE LAUROXIL

REACTIONS (3)
  - Dysphagia [None]
  - Trismus [None]
  - Tremor [None]

NARRATIVE: CASE EVENT DATE: 20240109
